FAERS Safety Report 8050943-5 (Version None)
Quarter: 2012Q1

REPORT INFORMATION
  Report Type: 
  Country: None (occurrence: None)
  Receive Date: 20120117
  Receipt Date: 20120111
  Transmission Date: 20120608
  Serious: Yes (Death, Other)
  Sender: FDA-Public Use
  Company Number: PHHY2011SK13913

PATIENT
  Sex: Male

DRUGS (3)
  1. AFINITOR [Suspect]
     Indication: METASTATIC RENAL CELL CARCINOMA
     Dosage: 10 MG, DAILY
     Route: 048
     Dates: start: 20100323, end: 20110209
  2. ZOMETA [Suspect]
     Indication: METASTATIC RENAL CELL CARCINOMA
     Dosage: 4 MG, BIW
     Route: 042
     Dates: start: 20091111, end: 20110209
  3. NEXAVAR [Concomitant]
     Indication: METASTATIC RENAL CELL CARCINOMA

REACTIONS (3)
  - NEOPLASM MALIGNANT [None]
  - HYPOPHOSPHATAEMIA [None]
  - NEOPLASM PROGRESSION [None]
